FAERS Safety Report 15110658 (Version 2)
Quarter: 2018Q3

REPORT INFORMATION
  Report Type: Report from Study
  Country: US (occurrence: US)
  Receive Date: 20180705
  Receipt Date: 20180824
  Transmission Date: 20181010
  Serious: Yes (Hospitalization, Other)
  Sender: FDA-Public Use
  Company Number: PHHO2015US011006

PATIENT
  Age: 72 Year
  Sex: Female
  Weight: 54.6 kg

DRUGS (9)
  1. LEXAPRO [Concomitant]
     Active Substance: ESCITALOPRAM OXALATE
     Indication: DEPRESSION
     Dosage: 5 MG, QD
     Route: 048
     Dates: start: 20150805
  2. BLINDED NO TREATMENT RECEIVED [Suspect]
     Active Substance: INVESTIGATIONAL PRODUCT
     Indication: SARCOPENIA
     Dosage: CODE NOT BROKEN
     Route: 042
     Dates: start: 20150622, end: 20180622
  3. IBUPROFEN. [Concomitant]
     Active Substance: IBUPROFEN
     Indication: OSTEOARTHRITIS
     Dosage: 200 MG, PRN
     Route: 048
     Dates: start: 2001
  4. LORAZEPAM. [Concomitant]
     Active Substance: LORAZEPAM
     Indication: ANXIETY
     Dosage: 1 MG, QD
     Route: 048
     Dates: start: 2009
  5. NAPROXEN. [Concomitant]
     Active Substance: NAPROXEN
     Indication: OSTEOARTHRITIS
     Dosage: 220 MG, PRN
     Route: 048
     Dates: start: 2012
  6. BLINDED BYM338 [Suspect]
     Active Substance: BIMAGRUMAB
     Indication: SARCOPENIA
     Dosage: CODE NOT BROKEN
     Route: 042
     Dates: start: 20150622, end: 20180622
  7. BLINDED PLACEBO [Suspect]
     Active Substance: INVESTIGATIONAL PRODUCT
     Indication: SARCOPENIA
     Dosage: CODE NOT BROKEN
     Route: 042
     Dates: start: 20150622, end: 20180622
  8. VITAMIN D [Concomitant]
     Active Substance: CHOLECALCIFEROL
     Indication: SUPPLEMENTATION THERAPY
     Dosage: 2000 IU, QD
     Route: 048
     Dates: start: 2005
  9. ATORVASTATIN [Suspect]
     Active Substance: ATORVASTATIN
     Indication: PROPHYLAXIS
     Dosage: 80 MG, QD
     Route: 048
     Dates: start: 20150625, end: 20150824

REACTIONS (2)
  - Blood alkaline phosphatase increased [Recovered/Resolved]
  - Acute myocardial infarction [Recovered/Resolved with Sequelae]

NARRATIVE: CASE EVENT DATE: 20150625
